FAERS Safety Report 25018190 (Version 5)
Quarter: 2025Q3

REPORT INFORMATION
  Report Type: Spontaneous
  Country: US (occurrence: US)
  Receive Date: 20250227
  Receipt Date: 20250807
  Transmission Date: 20251021
  Serious: No
  Sender: BRISTOL-MYERS SQUIBB COMPANY
  Company Number: US-BRISTOL-MYERS SQUIBB COMPANY-2025-029738

PATIENT
  Age: 70 Year
  Sex: Female

DRUGS (2)
  1. REVLIMID [Suspect]
     Active Substance: LENALIDOMIDE
     Indication: Plasma cell myeloma
     Route: 048
  2. REVLIMID [Suspect]
     Active Substance: LENALIDOMIDE
     Route: 048

REACTIONS (7)
  - Weight decreased [Unknown]
  - Product dose omission issue [Unknown]
  - Treatment noncompliance [Unknown]
  - Bronchitis [Unknown]
  - Fatigue [Unknown]
  - Off label use [Unknown]
  - Constipation [Unknown]

NARRATIVE: CASE EVENT DATE: 20250419
